FAERS Safety Report 22245854 (Version 1)
Quarter: 2023Q2

REPORT INFORMATION
  Report Type: Spontaneous
  Country: US (occurrence: US)
  Receive Date: 20230424
  Receipt Date: 20230424
  Transmission Date: 20230722
  Serious: No
  Sender: FDA-Public Use
  Company Number: US-BIOVITRUM-2023-US-008575

PATIENT
  Age: 52 Year
  Sex: Female

DRUGS (2)
  1. KINERET [Suspect]
     Active Substance: ANAKINRA
     Indication: Pericardial disease
     Dosage: FREQUENCY: DAILY
     Route: 058
     Dates: start: 20190404
  2. PAXLOVID [Suspect]
     Active Substance: NIRMATRELVIR\RITONAVIR
     Indication: Product used for unknown indication

REACTIONS (5)
  - COVID-19 [Unknown]
  - Injection site pain [Unknown]
  - Drug intolerance [Unknown]
  - Injection site reaction [Recovered/Resolved]
  - Intentional product misuse [Unknown]

NARRATIVE: CASE EVENT DATE: 20190404
